FAERS Safety Report 10009896 (Version 2)
Quarter: 2014Q1

REPORT INFORMATION
  Report Type: Report from Study
  Country: US (occurrence: US)
  Receive Date: 20140313
  Receipt Date: 20140313
  Transmission Date: 20141002
  Serious: Yes (Hospitalization)
  Sender: FDA-Public Use
  Company Number: PHHO2014US001986

PATIENT
  Age: 70 Year
  Sex: Female
  Weight: 67.2 kg

DRUGS (6)
  1. LBH589 [Suspect]
     Indication: HODGKIN^S DISEASE LYMPHOCYTE DEPLETION TYPE REFRACTORY
     Dosage: 30 MG, TIW
     Route: 048
     Dates: start: 20140123
  2. CARBOPLATIN [Suspect]
     Indication: CHEMOTHERAPY
     Dosage: 5 MG/ML/MIN ON DAY 1
     Route: 042
     Dates: start: 20140130, end: 20140130
  3. IFOSFAMIDE [Suspect]
     Indication: CHEMOTHERAPY
     Dosage: 5G/M2 24 HOURS ON DAY 1
     Route: 042
     Dates: start: 20140130, end: 20140130
  4. ETOPOSIDE [Suspect]
     Indication: CHEMOTHERAPY
     Dosage: 100 MG/M2/DAY(DAY 1, 2 AND 3)
     Dates: start: 20140130, end: 20140201
  5. MESNA [Concomitant]
     Dosage: 5G/M2 ON DAY 1 AND 2G/M2 ON DAY2
     Dates: start: 20140130
  6. FLUID/ELECTROLYTE REPLACEMENT THERAPY [Suspect]

REACTIONS (1)
  - Syncope [Recovered/Resolved]
